FAERS Safety Report 18876136 (Version 3)
Quarter: 2021Q2

REPORT INFORMATION
  Report Type: Spontaneous
  Country: FR (occurrence: FR)
  Receive Date: 20210210
  Receipt Date: 20210405
  Transmission Date: 20210717
  Serious: Yes (Hospitalization, Other)
  Sender: FDA-Public Use
  Company Number: FR-PFIZER INC-2021109291

PATIENT
  Age: 51 Year
  Sex: Female
  Weight: 61 kg

DRUGS (27)
  1. LEVOTHYROX [Concomitant]
     Active Substance: LEVOTHYROXINE
     Dosage: 112.5 MG, 1X/DAY
     Dates: start: 20150609
  2. TRINORDIOL [Suspect]
     Active Substance: ETHINYL ESTRADIOL\LEVONORGESTREL
     Dosage: UNK
     Route: 048
     Dates: start: 20140417
  3. TRINORDIOL [Suspect]
     Active Substance: ETHINYL ESTRADIOL\LEVONORGESTREL
     Dosage: UNK
     Route: 048
     Dates: start: 20150609
  4. LUTENYL [Suspect]
     Active Substance: NOMEGESTROL ACETATE
     Indication: CONTRACEPTION
     Dosage: 5 MG, 1X/DAY FROM 5TH TO 24TH DAY
     Route: 048
     Dates: start: 2006, end: 2018
  5. LUTENYL [Suspect]
     Active Substance: NOMEGESTROL ACETATE
     Dosage: 5 MG, 1X/DAY FOR 20 DAYS PER MONTH
     Route: 048
     Dates: start: 20110426
  6. LUTENYL [Suspect]
     Active Substance: NOMEGESTROL ACETATE
     Dosage: 5 MG, 1X/DAY
     Route: 048
     Dates: start: 20151221
  7. NOMEGESTROL ARROW [Suspect]
     Active Substance: NOMEGESTROL
     Dosage: 5 MG
     Route: 048
     Dates: end: 202009
  8. TRINORDIOL [Suspect]
     Active Substance: ETHINYL ESTRADIOL\LEVONORGESTREL
     Indication: CONTRACEPTION
     Dosage: UNK
     Route: 048
     Dates: start: 20110928, end: 20150914
  9. MINIDRIL [Suspect]
     Active Substance: ETHINYL ESTRADIOL\LEVONORGESTREL
     Indication: CONTRACEPTION
     Dosage: UNK
     Route: 048
     Dates: start: 1969
  10. LUTENYL [Suspect]
     Active Substance: NOMEGESTROL ACETATE
     Dosage: 5 MG, 1X/DAY FOR 20 DAYS PER MONTH
     Route: 048
     Dates: start: 20060130
  11. LEVOTHYROX [Concomitant]
     Active Substance: LEVOTHYROXINE
     Dosage: 1 DF, DAILY
     Route: 048
     Dates: start: 20130828
  12. TRINORDIOL [Suspect]
     Active Substance: ETHINYL ESTRADIOL\LEVONORGESTREL
     Dosage: UNK
     Route: 048
     Dates: start: 20130828
  13. TRINORDIOL [Suspect]
     Active Substance: ETHINYL ESTRADIOL\LEVONORGESTREL
     Dosage: UNK
     Route: 048
     Dates: start: 20141201
  14. LUTENYL [Suspect]
     Active Substance: NOMEGESTROL ACETATE
     Dosage: 5 MG, 1X/DAY
     Route: 048
     Dates: start: 20160304
  15. LEVOTHYROX [Concomitant]
     Active Substance: LEVOTHYROXINE
     Dosage: 1 DF, DAILY
     Route: 048
     Dates: start: 20130108
  16. LEVOTHYROX [Concomitant]
     Active Substance: LEVOTHYROXINE
     Dosage: 112.5 MG, 1X/DAY
     Dates: start: 20141201
  17. MINIDRIL [Suspect]
     Active Substance: ETHINYL ESTRADIOL\LEVONORGESTREL
     Dosage: UNK
     Route: 048
     Dates: start: 20051121
  18. STEDIRIL [ETHINYL ESTRADIOL\NORGESTREL] [Suspect]
     Active Substance: ETHINYL ESTRADIOL\NORGESTREL
     Indication: CONTRACEPTION
     Dosage: UNK
     Route: 048
     Dates: start: 1999
  19. NOMEGESTROL ARROW [Suspect]
     Active Substance: NOMEGESTROL
     Dosage: 5 MG
     Route: 048
     Dates: start: 202009
  20. LEVOTHYROX [Concomitant]
     Active Substance: LEVOTHYROXINE
     Dosage: 1 DF, DAILY
     Dates: start: 2011
  21. LEVOTHYROX [Concomitant]
     Active Substance: LEVOTHYROXINE
     Dosage: 1 DF, DAILY
     Route: 048
     Dates: start: 20140923, end: 2020
  22. LEVOTHYROX [Concomitant]
     Active Substance: LEVOTHYROXINE
     Dosage: 112.5 MG, 1X/DAY
     Dates: start: 20160304
  23. LUTENYL [Suspect]
     Active Substance: NOMEGESTROL ACETATE
     Dosage: 5 MG, 1X/DAY FOR 20 DAYS PER MONTH
     Route: 048
     Dates: start: 20060202, end: 2011
  24. LUTENYL [Suspect]
     Active Substance: NOMEGESTROL ACETATE
     Dosage: 5 MG, 1X/DAY FOR 20 DAYS PER MONTH
     Route: 048
     Dates: start: 20150915, end: 2016
  25. NOMEGESTROL ARROW [Suspect]
     Active Substance: NOMEGESTROL
     Indication: CONTRACEPTION
     Dosage: 5 MG, DAILY, FROM 5 TH TO 25TH DAY OF CYCLE
     Route: 048
     Dates: start: 20161212, end: 2018
  26. LEVOTHYROX [Concomitant]
     Active Substance: LEVOTHYROXINE
     Dosage: 1/2 TABLET, DAILY
     Dates: start: 20121008, end: 2020
  27. LEVOTHYROX [Concomitant]
     Active Substance: LEVOTHYROXINE
     Dosage: 1 DF, DAILY
     Route: 048
     Dates: start: 20140417

REACTIONS (6)
  - Asthenopia [Not Recovered/Not Resolved]
  - Visual impairment [Recovering/Resolving]
  - Fall [Unknown]
  - Meningioma [Recovered/Resolved with Sequelae]
  - IIIrd nerve paralysis [Recovered/Resolved with Sequelae]
  - Diplopia [Recovering/Resolving]

NARRATIVE: CASE EVENT DATE: 20200916
